FAERS Safety Report 9329298 (Version 1)
Quarter: 2013Q2

REPORT INFORMATION
  Report Type: Spontaneous
  Country: US (occurrence: US)
  Receive Date: 20130604
  Receipt Date: 20130604
  Transmission Date: 20140414
  Serious: No
  Sender: FDA-Public Use
  Company Number: US-SANOFI-AVENTIS-2012SA081703

PATIENT
  Age: 66 Year
  Sex: Female

DRUGS (3)
  1. LANTUS SOLOSTAR [Suspect]
     Dosage: DOSE:12 UNIT(S)
     Route: 058
     Dates: start: 2006, end: 201211
  2. SOLOSTAR [Suspect]
     Dates: start: 2006, end: 2012
  3. NOVOLOG [Suspect]
     Route: 065

REACTIONS (1)
  - Dyspepsia [Not Recovered/Not Resolved]
